FAERS Safety Report 19834548 (Version 1)
Quarter: 2021Q3

REPORT INFORMATION
  Report Type: Other
  Country: None (occurrence: US)
  Receive Date: 20210915
  Receipt Date: 20210915
  Transmission Date: 20211014
  Serious: No
  Sender: FDA-Public Use
  Company Number: US-LEADIANT BIOSCIENCES INC-2020STPI000488

PATIENT
  Sex: Female

DRUGS (1)
  1. MATULANE [Suspect]
     Active Substance: PROCARBAZINE HYDROCHLORIDE
     Indication: IMMUNODEFICIENCY COMMON VARIABLE
     Dosage: 50 MILLIGRAM, 3 CAPSULES FOR 1 TO 7 DAYS OF CYCLES 2,3,5, CHEMO REGIMENT (CYCLE EVERY 14 DAYS
     Route: 048
     Dates: start: 20201029

REACTIONS (1)
  - Nausea [Not Recovered/Not Resolved]
